FAERS Safety Report 7399840-9 (Version None)
Quarter: 2011Q2

REPORT INFORMATION
  Report Type: 
  Country: None (occurrence: None)
  Receive Date: 20110407
  Receipt Date: 20110404
  Transmission Date: 20111010
  Serious: Yes (Other)
  Sender: FDA-Public Use
  Company Number: US-PFIZER INC-HQWYE375804JAN05

PATIENT
  Sex: Female
  Weight: 85 kg

DRUGS (6)
  1. ESTRATEST [Suspect]
     Indication: HORMONE REPLACEMENT THERAPY
     Dosage: UNK
     Dates: start: 19920901, end: 19940101
  2. PREMPRO [Suspect]
     Indication: HORMONE REPLACEMENT THERAPY
     Dosage: UNK
     Route: 048
     Dates: start: 19940101, end: 19980101
  3. PREMARIN [Suspect]
     Indication: HORMONE REPLACEMENT THERAPY
     Dosage: UNK
     Route: 048
  4. PROVERA [Suspect]
     Indication: HORMONE REPLACEMENT THERAPY
     Dosage: UNK
     Route: 048
     Dates: start: 19800701, end: 19940101
  5. ACETYLSALICYLIC ACID [Concomitant]
     Indication: PAIN
     Dosage: UNK
  6. ACETYLSALICYLIC ACID [Concomitant]

REACTIONS (4)
  - ANOSMIA [None]
  - BREAST CANCER FEMALE [None]
  - AGEUSIA [None]
  - KERATOCONJUNCTIVITIS SICCA [None]
